FAERS Safety Report 14122524 (Version 1)
Quarter: 2017Q4

REPORT INFORMATION
  Report Type: Spontaneous
  Country: US (occurrence: US)
  Receive Date: 20171024
  Receipt Date: 20171024
  Transmission Date: 20180321
  Serious: Yes (Hospitalization)
  Sender: FDA-Public Use
  Company Number: US-VIFOR (INTERNATIONAL) INC.-VIT-2017-10474

PATIENT
  Age: 58 Year
  Sex: Male

DRUGS (25)
  1. VIRT CAPS [Concomitant]
  2. TRAMADOL HYDROCHLORIDE. [Concomitant]
     Active Substance: TRAMADOL HYDROCHLORIDE
  3. MIRTAZAPINE. [Concomitant]
     Active Substance: MIRTAZAPINE
  4. MAGNESIUM HYDROXIDE. [Concomitant]
     Active Substance: MAGNESIUM HYDROXIDE
  5. FELODIPINE. [Concomitant]
     Active Substance: FELODIPINE
  6. SODIUM BICARBONATE. [Concomitant]
     Active Substance: SODIUM BICARBONATE
  7. SENEXON-S [Concomitant]
     Active Substance: DOCUSATE SODIUM\SENNOSIDES A AND B
  8. RISAMINE [Concomitant]
     Active Substance: MENTHOL\ZINC OXIDE
  9. LORAZEPAM. [Concomitant]
     Active Substance: LORAZEPAM
  10. HUMALOG [Concomitant]
     Active Substance: INSULIN LISPRO
  11. SALBUTAMOL SULFATE [Concomitant]
     Active Substance: ALBUTEROL SULFATE
  12. PARACETAMOL~~OXYCODONE HYDROCHLORIDE [Concomitant]
  13. HYSEPT [Concomitant]
     Active Substance: SODIUM HYPOCHLORITE
  14. ATORVASTATIN CALCIUM. [Concomitant]
     Active Substance: ATORVASTATIN CALCIUM
  15. ARANESP [Concomitant]
     Active Substance: DARBEPOETIN ALFA
  16. TEFLARO [Concomitant]
     Active Substance: CEFTAROLINE FOSAMIL
  17. CALCIUM CARBONATE. [Concomitant]
     Active Substance: CALCIUM CARBONATE
  18. ACETYLSALICYLIC ACID [Concomitant]
     Active Substance: ASPIRIN
  19. LANTUS [Concomitant]
     Active Substance: INSULIN GLARGINE
  20. HYDROMORPHONE HYDROCHLORIDE. [Concomitant]
     Active Substance: HYDROMORPHONE HYDROCHLORIDE
  21. H-CHLOR 12 [Concomitant]
  22. PARACETAMOL [Concomitant]
     Active Substance: ACETAMINOPHEN
  23. VELTASSA [Suspect]
     Active Substance: PATIROMER
     Indication: HYPERKALAEMIA
     Route: 048
     Dates: start: 20170607
  24. METOPROLOL SUCCINATE. [Concomitant]
     Active Substance: METOPROLOL SUCCINATE
  25. DOCUSATE SODIUM. [Concomitant]
     Active Substance: DOCUSATE SODIUM

REACTIONS (1)
  - Fall [Unknown]

NARRATIVE: CASE EVENT DATE: 20170930
